FAERS Safety Report 4573588-8 (Version None)
Quarter: 2005Q1

REPORT INFORMATION
  Report Type: 
  Country: None (occurrence: None)
  Receive Date: 20050203
  Receipt Date: 20050121
  Transmission Date: 20050727
  Serious: Yes (Other)
  Sender: FDA-Public Use
  Company Number: 2005-0007957

PATIENT
  Sex: Female

DRUGS (3)
  1. EMTRIVA [Suspect]
  2. VIREAD [Suspect]
  3. SUSTIVA [Concomitant]

REACTIONS (2)
  - LACTIC ACIDOSIS [None]
  - NAUSEA [None]
